FAERS Safety Report 12993727 (Version 2)
Quarter: 2017Q2

REPORT INFORMATION
  Report Type: Spontaneous
  Country: US (occurrence: US)
  Receive Date: 20161202
  Receipt Date: 20170406
  Transmission Date: 20170830
  Serious: No
  Sender: FDA-Public Use
  Company Number: US-JNJFOC-20161123009

PATIENT
  Sex: Male

DRUGS (2)
  1. RISPERDAL [Suspect]
     Active Substance: RISPERIDONE
     Indication: PSYCHOTIC DISORDER
     Route: 048
     Dates: start: 2001, end: 2003
  2. RISPERDAL [Suspect]
     Active Substance: RISPERIDONE
     Indication: CONDUCT DISORDER
     Route: 048
     Dates: start: 2001, end: 2003

REACTIONS (6)
  - Feeling abnormal [Unknown]
  - Emotional distress [Unknown]
  - Gynaecomastia [Unknown]
  - Drooling [Unknown]
  - Abnormal weight gain [Unknown]
  - Anxiety [Unknown]

NARRATIVE: CASE EVENT DATE: 2003
